FAERS Safety Report 8290937 (Version 4)
Quarter: 2016Q3

REPORT INFORMATION
  Report Type: Report from Study
  Country: CA (occurrence: CA)
  Receive Date: 20111214
  Receipt Date: 20160815
  Transmission Date: 20161109
  Serious: Yes (Hospitalization, Other)
  Sender: FDA-Public Use
  Company Number: CA-UCBSA-047290

PATIENT
  Sex: Male

DRUGS (11)
  1. REPLAVITE [Concomitant]
     Indication: SUPPLEMENTATION THERAPY
     Dosage: 100 MG, ONCE DAILY (QD)
     Route: 048
  2. ELTROXIN [Concomitant]
     Active Substance: LEVOTHYROXINE
     Indication: THYROID DISORDER
     Dosage: .2 MG, ONCE DAILY (QD)
     Route: 048
  3. ADVAIR HFA [Concomitant]
     Active Substance: FLUTICASONE PROPIONATE\SALMETEROL XINAFOATE
     Indication: RESPIRATORY DISORDER
     Dosage: DOSE PER INTAKE:II PUFF ; NO. OF INTAKES: BID/PRN ; ROUTE: INHALATIONAL
     Route: 055
  4. VITAMIN B12 [Concomitant]
     Active Substance: CYANOCOBALAMIN
     Indication: SUPPLEMENTATION THERAPY
     Dosage: UNKNOWN DOSE
     Route: 030
  5. CERTOLIZUMAB PEGOL RA [Suspect]
     Active Substance: CERTOLIZUMAB PEGOL
     Indication: RHEUMATOID ARTHRITIS
     Dosage: 400 MG ONCE IN EVERY 4 WEEKS; ON HOLD
     Route: 058
     Dates: start: 20110819, end: 2011
  6. ISONIAZID+VIT B6 [Concomitant]
     Indication: PULMONARY TUBERCULOSIS
     Dosage: UNK UNK, ONCE DAILY (QD)
     Route: 048
     Dates: start: 20110525
  7. ASPIRIN. [Concomitant]
     Active Substance: ASPIRIN
     Indication: CARDIAC DISORDER
     Dosage: 81 MG, ONCE DAILY (QD)
     Route: 048
  8. CERTOLIZUMAB PEGOL RA [Suspect]
     Active Substance: CERTOLIZUMAB PEGOL
     Dosage: 400 MG ONCE IN EVERY 2 WEEKS
     Route: 058
     Dates: start: 20110624, end: 20111111
  9. PREDNISONE. [Concomitant]
     Active Substance: PREDNISONE
     Indication: RHEUMATOID ARTHRITIS
     Dosage: 30 MG, ONCE DAILY (QD)
     Route: 048
     Dates: start: 201111
  10. FOLIC ACID. [Concomitant]
     Active Substance: FOLIC ACID
     Indication: SUPPLEMENTATION THERAPY
     Dosage: 5 MG, ONCE DAILY (QD)
     Route: 048
  11. ARAVA [Concomitant]
     Active Substance: LEFLUNOMIDE
     Indication: RHEUMATOID ARTHRITIS
     Dosage: 20 MG, ONCE DAILY (QD)
     Route: 048
     Dates: start: 200603

REACTIONS (6)
  - Asthenia [Unknown]
  - Renal disorder [Recovered/Resolved]
  - Cerebrovascular accident [Recovered/Resolved]
  - Lung infection [Recovered/Resolved]
  - Cystitis [Recovering/Resolving]
  - Renal cancer [Not Recovered/Not Resolved]

NARRATIVE: CASE EVENT DATE: 2011
